FAERS Safety Report 4620911-1 (Version None)
Quarter: 2005Q1

REPORT INFORMATION
  Report Type: 
  Country: None (occurrence: None)
  Receive Date: 20050325
  Receipt Date: 20050310
  Transmission Date: 20050727
  Serious: Yes (Hospitalization)
  Sender: FDA-Public Use
  Company Number: A02200403504

PATIENT
  Age: 77 Year
  Sex: Female

DRUGS (4)
  1. KERLONE [Suspect]
     Indication: HYPERTENSION
     Dosage: 20 MG OD
     Route: 048
  2. LEVOTHYROXINE SODIUM [Suspect]
     Indication: HYPOTHYROIDISM
     Dosage: 100 MCG QD
     Route: 048
  3. ALDACTAZINE - (SPIRONOLACTONE, ALTIZIDE) - TABLET - 25 MG [Suspect]
     Indication: HYPERTENSION
     Dosage: 12.5 MG OD
     Route: 048
     Dates: end: 20040804
  4. HEXAQUINE - (QUININE, THIAMINE) - TABLET - 160 MG [Suspect]
     Dosage: 2 UNIT
     Route: 048
     Dates: end: 20040804

REACTIONS (3)
  - CHOLESTASIS [None]
  - CYTOLYTIC HEPATITIS [None]
  - HEPATITIS A [None]
